FAERS Safety Report 4553431-3 (Version None)
Quarter: 2005Q1

REPORT INFORMATION
  Report Type: 
  Country: None (occurrence: None)
  Receive Date: 20050112
  Receipt Date: 20041228
  Transmission Date: 20050727
  Serious: Yes (Hospitalization)
  Sender: FDA-Public Use
  Company Number: 04-0098PO

PATIENT
  Age: 76 Year
  Sex: Male

DRUGS (12)
  1. PONSTEL [Suspect]
     Dosage: 250MG, BID; PO
     Route: 048
     Dates: start: 20041120, end: 20041124
  2. LOXONIN (LOXOPROFEN SODIUM) [Suspect]
     Indication: BRONCHITIS
     Dosage: 60MG, TID; PO
     Route: 048
     Dates: start: 20041115, end: 20041119
  3. CEFACLOR [Suspect]
     Indication: UPPER RESPIRATORY TRACT INFECTION
     Dosage: 250MG TID; PO
     Route: 048
     Dates: start: 20041115, end: 20041119
  4. CEFCAPENE PIVOXIL HYDROCHLORIDE [Suspect]
     Indication: BRONCHITIS
     Dosage: 100MG TID; PO
     Route: 048
     Dates: start: 20041120, end: 20041124
  5. CEFCAPENE PIVOXIL HYDROCHLORIDE [Suspect]
     Indication: NASOPHARYNGITIS
     Dosage: 100MG TID; PO
     Route: 048
     Dates: start: 20041120, end: 20041124
  6. CEFCAPENE PIVOXIL HYDROCHLORIDE [Suspect]
     Indication: PYREXIA
     Dosage: 100MG TID; PO
     Route: 048
     Dates: start: 20041120, end: 20041124
  7. INDOMETHACIN [Suspect]
     Indication: BRONCHITIS
     Dosage: 25MG, BID, RECTALLY
     Route: 054
     Dates: start: 20041120, end: 20041124
  8. INDOMETHACIN [Suspect]
     Indication: NASOPHARYNGITIS
     Dosage: 25MG, BID, RECTALLY
     Route: 054
     Dates: start: 20041120, end: 20041124
  9. INDOMETHACIN [Suspect]
     Indication: PYREXIA
     Dosage: 25MG, BID, RECTALLY
     Route: 054
     Dates: start: 20041120, end: 20041124
  10. MIRADOL [Concomitant]
  11. ARTANE [Concomitant]
  12. INSULIN [Concomitant]

REACTIONS (13)
  - BLISTER [None]
  - DEPRESSION [None]
  - HEPATITIS [None]
  - HYPERCAPNIA [None]
  - HYPOXIA [None]
  - NASOPHARYNGITIS [None]
  - NEUROLEPTIC MALIGNANT SYNDROME [None]
  - PNEUMONIA ASPIRATION [None]
  - PYREXIA [None]
  - RENAL FAILURE ACUTE [None]
  - RHABDOMYOLYSIS [None]
  - SUPRANUCLEAR PALSY [None]
  - UPPER RESPIRATORY TRACT INFLAMMATION [None]
